FAERS Safety Report 9258383 (Version 1)
Quarter: 2013Q2

REPORT INFORMATION
  Report Type: Spontaneous
  Country: US (occurrence: US)
  Receive Date: 20130426
  Receipt Date: 20130426
  Transmission Date: 20140414
  Serious: No
  Sender: FDA-Public Use
  Company Number: US-TEVA-400993USA

PATIENT
  Age: 77 Year
  Sex: Female

DRUGS (1)
  1. PROAIR HFA [Suspect]

REACTIONS (1)
  - Drug ineffective [Unknown]
